FAERS Safety Report 5530729-3 (Version None)
Quarter: 2007Q4

REPORT INFORMATION
  Report Type: 
  Country: None (occurrence: None)
  Receive Date: 20071130
  Receipt Date: 20070529
  Transmission Date: 20080405
  Serious: No
  Sender: FDA-Public Use
  Company Number: US-BRISTOL-MYERS SQUIBB COMPANY-13797584

PATIENT
  Age: 35 Year
  Sex: Female
  Weight: 55 kg

DRUGS (4)
  1. KENALOG [Suspect]
     Indication: RASH MACULAR
     Dosage: REC'D 40 MG IM ON 08-SEP-2005 AND 06-OCT-2005
     Route: 030
     Dates: start: 20050908, end: 20051006
  2. KENALOG [Suspect]
     Indication: ALLERGIC SINUSITIS
     Dosage: REC'D 40 MG IM ON 08-SEP-2005 AND 06-OCT-2005
     Route: 030
     Dates: start: 20050908, end: 20051006
  3. SYNTHROID [Concomitant]
  4. YASMIN [Concomitant]

REACTIONS (1)
  - INJECTION SITE ATROPHY [None]
